FAERS Safety Report 16395569 (Version 1)
Quarter: 2019Q3

REPORT INFORMATION
  Report Type: Spontaneous
  Country: US (occurrence: US)
  Receive Date: 20190604
  Receipt Date: 20190604
  Transmission Date: 20191004
  Serious: No
  Sender: FDA-Public Use
  Company Number: None

PATIENT
  Age: 27 Year
  Sex: Female
  Weight: 79.83 kg

DRUGS (1)
  1. ETONOGESTREL BIRTH CONTROL IMPLANT [Suspect]
     Active Substance: ETONOGESTREL

REACTIONS (5)
  - Menstruation irregular [None]
  - Complication of device removal [None]
  - Implant site scar [None]
  - Implant site pain [None]
  - Menorrhagia [None]

NARRATIVE: CASE EVENT DATE: 20151001
